FAERS Safety Report 14403382 (Version 1)
Quarter: 2018Q1

REPORT INFORMATION
  Report Type: Spontaneous
  Country: US (occurrence: US)
  Receive Date: 20180117
  Receipt Date: 20180117
  Transmission Date: 20180509
  Serious: Yes (Other)
  Sender: FDA-Public Use
  Company Number: US-REGENERON PHARMACEUTICALS, INC.-2017-10967

PATIENT

DRUGS (12)
  1. EYLEA [Suspect]
     Active Substance: AFLIBERCEPT
     Dosage: UNK UNK, MONTHLY
     Route: 031
     Dates: start: 201611, end: 201611
  2. EYLEA [Suspect]
     Active Substance: AFLIBERCEPT
     Dosage: LEFT EYE, MONTHLY
     Route: 031
     Dates: start: 20161216, end: 20161216
  3. VITAMIN B12 [Concomitant]
     Active Substance: CYANOCOBALAMIN
     Indication: STRESS
     Dosage: UNK, AS NECESSARY
  4. VITAMIN D                          /00107901/ [Concomitant]
     Active Substance: ERGOCALCIFEROL
     Indication: PRODUCT USED FOR UNKNOWN INDICATION
     Dosage: UNK
  5. CALCIUM MAGNESIUM                  /00591201/ [Concomitant]
     Indication: PRODUCT USED FOR UNKNOWN INDICATION
     Dosage: 1000 MG MILLIGRAM(S), UNK
  6. VITAMIN C [Concomitant]
     Active Substance: ASCORBIC ACID
     Indication: PRODUCT USED FOR UNKNOWN INDICATION
     Dosage: UNK
  7. PRESERVISION AREDS 2 [Concomitant]
     Active Substance: MINERALS\VITAMINS
     Indication: PRODUCT USED FOR UNKNOWN INDICATION
     Dosage: UNK
  8. VITAMIN B [Concomitant]
     Active Substance: VITAMIN B
     Indication: PRODUCT USED FOR UNKNOWN INDICATION
     Dosage: UNK
  9. MULTIVITAMIN                       /00097801/ [Concomitant]
     Active Substance: VITAMINS
     Indication: PRODUCT USED FOR UNKNOWN INDICATION
     Dosage: UNK
  10. EYLEA [Suspect]
     Active Substance: AFLIBERCEPT
     Indication: MACULAR OEDEMA
     Dosage: UNK UNK, MONTHLY
     Route: 031
     Dates: start: 201610
  11. LOSARTAN. [Concomitant]
     Active Substance: LOSARTAN
     Indication: PRODUCT USED FOR UNKNOWN INDICATION
     Dosage: UNK
  12. VALIUM [Concomitant]
     Active Substance: DIAZEPAM
     Indication: STRESS
     Dosage: UNK, AS NECESSARY

REACTIONS (6)
  - Affect lability [Unknown]
  - Asthenopia [Unknown]
  - Visual impairment [Unknown]
  - Metamorphopsia [Unknown]
  - Retinal pigment epithelial tear [Unknown]
  - Eye pain [Recovered/Resolved]

NARRATIVE: CASE EVENT DATE: 201610
